FAERS Safety Report 9361606 (Version 1)
Quarter: 2013Q2

REPORT INFORMATION
  Report Type: Spontaneous
  Country: FI (occurrence: FI)
  Receive Date: 20130621
  Receipt Date: 20130621
  Transmission Date: 20140414
  Serious: Yes (Death)
  Sender: FDA-Public Use
  Company Number: FI-B.I. PHARMACEUTICALS,INC./RIDGEFIELD-2013-SW-00321SF

PATIENT
  Age: 80 Year
  Sex: Male

DRUGS (11)
  1. TRAJENTA [Suspect]
     Route: 048
     Dates: start: 20130412
  2. MAREVAN [Concomitant]
  3. PRIMASPAN [Concomitant]
     Dosage: 100 MG
  4. BISOPROLOL COMP [Concomitant]
     Dosage: DOSE OF ONE APPLICATION UNIT 5/12,5 MG
  5. ORMOX [Concomitant]
     Dosage: 20 MG
  6. ZANIDIP [Concomitant]
     Dosage: 20 MG
  7. COVERSYL [Concomitant]
     Dosage: 10 MG
  8. SIMVASTATIN [Concomitant]
     Dosage: 40 MG
  9. GEFINA [Concomitant]
     Dosage: 5 MG
  10. DINIT [Concomitant]
     Dosage: SPRAY
  11. IMOVANE [Concomitant]

REACTIONS (1)
  - Sudden death [Fatal]
